FAERS Safety Report 17426081 (Version 2)
Quarter: 2020Q1

REPORT INFORMATION
  Report Type: Spontaneous
  Country: US (occurrence: US)
  Receive Date: 20200217
  Receipt Date: 20200221
  Transmission Date: 20200409
  Serious: Yes (Other)
  Sender: FDA-Public Use
  Company Number: US-BEH-2020112985

PATIENT
  Sex: Female

DRUGS (2)
  1. HAEGARDA [Suspect]
     Active Substance: HUMAN C1-ESTERASE INHIBITOR
     Indication: PROPHYLAXIS
     Dosage: 4000 INTERNATIONAL UNIT, BIW (REPORTED AS EVERY 3-4 DAYS)
     Route: 058
     Dates: start: 20180209
  2. HAEGARDA [Suspect]
     Active Substance: HUMAN C1-ESTERASE INHIBITOR
     Indication: HEREDITARY ANGIOEDEMA
     Dosage: 4000 INTERNATIONAL UNIT, BIW (REPORTED AS EVERY 3-4 DAYS)
     Route: 058
     Dates: start: 20180208

REACTIONS (3)
  - Hereditary angioedema [Unknown]
  - No adverse event [Unknown]
  - Insurance issue [Unknown]
